FAERS Safety Report 4512873-2 (Version None)
Quarter: 2004Q4

REPORT INFORMATION
  Report Type: 
  Country: None (occurrence: None)
  Receive Date: 20041119
  Receipt Date: 20041119
  Transmission Date: 20050328
  Serious: No
  Sender: FDA-Public Use
  Company Number: None

PATIENT
  Sex: Male
  Weight: 81.1939 kg

DRUGS (2)
  1. VELCADE [Suspect]
     Indication: MULTIPLE MYELOMA
     Dosage: 2.6 MG DAYS: 1,4,8 + 11 Q 3 WKS
     Dates: start: 20040913, end: 20041118
  2. NS IV FLUSH [Concomitant]

REACTIONS (2)
  - INFUSION RELATED REACTION [None]
  - VEIN DISCOLOURATION [None]
